FAERS Safety Report 5002007-2 (Version None)
Quarter: 2006Q2

REPORT INFORMATION
  Report Type: 
  Country: None (occurrence: None)
  Receive Date: 20060515
  Receipt Date: 20041027
  Transmission Date: 20061013
  Serious: Yes (Other)
  Sender: FDA-Public Use
  Company Number: JP-MERCK-0411USA00112B1

PATIENT
  Age: 10 Day
  Sex: Male
  Weight: 3 kg

DRUGS (2)
  1. ALDOMET [Suspect]
     Indication: HYPERTENSION
  2. ALDOMET [Suspect]

REACTIONS (11)
  - CAESAREAN SECTION [None]
  - CONGENITAL ANOMALY [None]
  - CONGENITAL CYTOMEGALOVIRUS INFECTION [None]
  - DEAFNESS NEUROSENSORY [None]
  - DILATATION VENTRICULAR [None]
  - DRUG EXPOSURE DURING PREGNANCY [None]
  - MODERATE MENTAL RETARDATION [None]
  - MOTOR DYSFUNCTION [None]
  - PAROTITIS [None]
  - PREMATURE BABY [None]
  - STAPHYLOCOCCAL INFECTION [None]
